FAERS Safety Report 22280810 (Version 1)
Quarter: 2023Q2

REPORT INFORMATION
  Report Type: Spontaneous
  Country: JP (occurrence: JP)
  Receive Date: 20230503
  Receipt Date: 20230503
  Transmission Date: 20230722
  Serious: No
  Sender: FDA-Public Use
  Company Number: JP-MTPC-MTPC2023-0010728

PATIENT
  Age: 5 Decade
  Sex: Female

DRUGS (11)
  1. REMICADE [Suspect]
     Active Substance: INFLIXIMAB
     Indication: Colitis ulcerative
     Dosage: UNK
     Route: 041
     Dates: start: 201304
  2. REMICADE [Suspect]
     Active Substance: INFLIXIMAB
     Dosage: UNK
     Route: 041
  3. GOLIMUMAB [Suspect]
     Active Substance: GOLIMUMAB
     Indication: Colitis ulcerative
     Dosage: UNK
     Route: 058
     Dates: start: 202109
  4. GOLIMUMAB [Suspect]
     Active Substance: GOLIMUMAB
     Dosage: 100 MILLIGRAM
     Route: 058
     Dates: end: 202302
  5. PREDNISOLONE [Concomitant]
     Active Substance: PREDNISOLONE
     Dosage: 40 MILLIGRAM
     Route: 065
     Dates: start: 200810
  6. PREDNISOLONE [Concomitant]
     Active Substance: PREDNISOLONE
     Dosage: 40 MILLIGRAM
     Route: 065
     Dates: start: 201408
  7. PREDNISOLONE [Concomitant]
     Active Substance: PREDNISOLONE
     Dosage: 40 MILLIGRAM
     Route: 065
     Dates: start: 202107
  8. GANCICLOVIR [Concomitant]
     Active Substance: GANCICLOVIR
     Dosage: UNK
     Route: 065
     Dates: start: 200810
  9. IMURAN [Concomitant]
     Active Substance: AZATHIOPRINE
     Dosage: UNK
     Route: 065
     Dates: start: 201408
  10. IMURAN [Concomitant]
     Active Substance: AZATHIOPRINE
     Dosage: 50 MILLIGRAM
     Route: 065
     Dates: start: 201512
  11. INFLIXIMAB [Concomitant]
     Active Substance: INFLIXIMAB
     Dosage: UNK
     Route: 065
     Dates: start: 202108

REACTIONS (1)
  - KL-6 increased [Recovering/Resolving]

NARRATIVE: CASE EVENT DATE: 20230201
